FAERS Safety Report 9910364 (Version 2)
Quarter: 2014Q1

REPORT INFORMATION
  Report Type: Spontaneous
  Country: US (occurrence: US)
  Receive Date: 20140219
  Receipt Date: 20140325
  Transmission Date: 20141002
  Serious: Yes (Death, Other)
  Sender: FDA-Public Use
  Company Number: US-GILEAD-2014-0094821

PATIENT
  Age: 60 Year
  Sex: Female
  Weight: 40.82 kg

DRUGS (6)
  1. LETAIRIS [Suspect]
     Indication: PORTOPULMONARY HYPERTENSION
     Route: 048
     Dates: start: 20070807, end: 20140103
  2. ESOMEPRAZOLE [Concomitant]
     Indication: DEPRESSION
  3. FUROSEMIDE [Concomitant]
     Indication: UNEVALUABLE EVENT
  4. LEVOTHYROXINE [Concomitant]
     Indication: THYROID DISORDER
  5. NADOLOL [Concomitant]
     Indication: GASTROINTESTINAL HAEMORRHAGE
  6. DOBUTAMINE [Concomitant]

REACTIONS (2)
  - Right ventricular failure [Fatal]
  - Pulmonary hypertension [Fatal]
